FAERS Safety Report 8209569-2 (Version None)
Quarter: 2012Q1

REPORT INFORMATION
  Report Type: 
  Country: None (occurrence: None)
  Receive Date: 20120314
  Receipt Date: 20120312
  Transmission Date: 20120608
  Serious: Yes (Other)
  Sender: FDA-Public Use
  Company Number: US-PFIZER INC-2012036668

PATIENT
  Sex: Female
  Weight: 79.365 kg

DRUGS (7)
  1. CITRACAL [Concomitant]
     Dosage: 500 MG, 2X/DAY
  2. ASCORBIC ACID [Concomitant]
     Dosage: 500 MG, DAILY
  3. MULTI-VITAMINS [Concomitant]
     Dosage: UNK, DAILY
  4. DILANTIN [Suspect]
     Indication: GRAND MAL CONVULSION
     Dosage: 300 MG, 1X/DAY
     Route: 048
     Dates: start: 19930101
  5. VITAMIN B COMPLEX CAP [Concomitant]
     Dosage: 50 MG, DAILY
  6. VITAMIN E [Concomitant]
     Dosage: 400 IU, DAILY
  7. COENZYME Q10 [Concomitant]
     Dosage: 100 MG, DAILY

REACTIONS (4)
  - FALL [None]
  - ANKLE FRACTURE [None]
  - LIGAMENT RUPTURE [None]
  - DRUG ADMINISTRATION ERROR [None]
